FAERS Safety Report 23842713 (Version 1)
Quarter: 2024Q2

REPORT INFORMATION
  Report Type: Spontaneous
  Country: ZA (occurrence: ZA)
  Receive Date: 20240510
  Receipt Date: 20240510
  Transmission Date: 20240716
  Serious: Yes (Death)
  Sender: FDA-Public Use
  Company Number: ZA-ABBOTT-2024A-1380814

PATIENT
  Age: 38 Year
  Sex: Male

DRUGS (22)
  1. CREON [Suspect]
     Active Substance: PANCRELIPASE AMYLASE\PANCRELIPASE LIPASE\PANCRELIPASE PROTEASE
     Indication: Product used for unknown indication
     Dosage: 300 MG TAKE ONE CAPSULE WITH NEALS IF NECESSARY? 25000 (PROTEAS AND  AMYLASE)
     Route: 048
  2. VALPROATE SODIUM [Concomitant]
     Active Substance: VALPROATE SODIUM
     Indication: Depression
     Dosage: 300 MG TAKE ONE TABLET TWICE A DAY?CR
     Route: 048
  3. QUETIAPINE [Concomitant]
     Active Substance: QUETIAPINE
     Indication: Depression
     Dosage: 25 MG DIRECTIONS TAKE THREETABLETS AT NIGHT
     Route: 048
  4. ASPEN AZITHROMYCIN [Concomitant]
     Indication: Product used for unknown indication
     Dosage: 500 MG TAKE ONE TABLET ON MONDAY, WEDNESDAY AND FRIDAY
     Route: 048
  5. ATOMOXETINE HYDROCHLORIDE [Concomitant]
     Active Substance: ATOMOXETINE HYDROCHLORIDE
     Indication: Product used for unknown indication
     Dosage: 60 MG DIRECTIONS TAKE ONE CAPSULE IN THE MORNING
     Route: 048
  6. ATOMOXETINE HYDROCHLORIDE [Concomitant]
     Active Substance: ATOMOXETINE HYDROCHLORIDE
     Indication: Product used for unknown indication
     Dosage: 40 MG DIRECTIONS TAKE ONE CAPSULE IN THE MORNING
     Route: 048
  7. ATTENTRA [Concomitant]
     Indication: Product used for unknown indication
     Dosage: 80 MG TAKE ONE CAPSULE ORALLY IN THE MORNING
     Route: 048
  8. SEREFLO SYNCHROBREATHE [Concomitant]
     Indication: Asthma
     Dosage: 25/125 MCG TAKE TWO PUFFS TWICE A DAY (RINSE MOUTH AFTER USE
     Route: 048
  9. SERTRALINE HYDROCHLORIDE [Concomitant]
     Active Substance: SERTRALINE HYDROCHLORIDE
     Indication: Depression
     Dosage: 100 MG DIRECTIONS TAKE ONE TABLET AT NIGHT
     Route: 048
  10. SERTRALINE HYDROCHLORIDE [Concomitant]
     Active Substance: SERTRALINE HYDROCHLORIDE
     Indication: Depression
     Dosage: 50 MG DIRECTIONS TAKE ONE TABLET AT NIGHT
     Route: 048
  11. CYCLOSPORINE [Concomitant]
     Active Substance: CYCLOSPORINE
     Indication: Organ transplant
     Dosage: 25 MG TAKE TWO CAPSULES TWICE A DAY
     Route: 048
  12. CERTICAN [Concomitant]
     Active Substance: EVEROLIMUS
     Indication: Organ transplant
     Dosage: 0.25 MG TAKE TWO TABLETS TWICE A DAY
     Route: 048
  13. CERTICAN [Concomitant]
     Active Substance: EVEROLIMUS
     Indication: Organ transplant
     Dosage: 0.75 MG TAKE ONE TABLET TWICE A DAY
     Route: 048
  14. CELLCEPT [Concomitant]
     Active Substance: MYCOPHENOLATE MOFETIL
     Indication: Product used for unknown indication
     Dosage: 500 MG TAKE TWO TABLETS TWICE A DAY
     Route: 048
  15. FLUTICASONE FUROATE\VILANTEROL TRIFENATATE [Concomitant]
     Active Substance: FLUTICASONE FUROATE\VILANTEROL TRIFENATATE
     Indication: Asthma
     Dosage: 184/22 MCG TAKE ONE PUFF ONCE DAILY?30DOSE (FLUTICASONE AND VILANTEROL)
     Route: 048
  16. SULFAMETHOXAZOLE\TRIMETHOPRIM [Concomitant]
     Active Substance: SULFAMETHOXAZOLE\TRIMETHOPRIM
     Indication: Product used for unknown indication
     Dosage: 960 MG TAKE ONE TABLET ON MONDAY,WEDNESDAY AND FRIDAY
     Route: 048
  17. ERGOCALCIFEROL [Concomitant]
     Active Substance: ERGOCALCIFEROL
     Indication: Product used for unknown indication
     Dosage: 50000 IU TAKE ONE TABLET WEEKLY
     Route: 048
  18. PREDNISONE [Concomitant]
     Active Substance: PREDNISONE
     Indication: Product used for unknown indication
     Dosage: 5 MG TAKE ONE AND A HALF TABLET ONCE DAILY AFTER A MEAL
     Route: 048
  19. ENSURE [Concomitant]
     Active Substance: AMINO ACIDS\DEXTROSE\ELECTROLYTES NOS\SOYBEAN OIL\VITAMINS
     Indication: Product used for unknown indication
     Dosage: CHOCOLATE AS PER PACKAGE INSERT
     Route: 048
  20. ENSURE [Concomitant]
     Active Substance: AMINO ACIDS\DEXTROSE\ELECTROLYTES NOS\SOYBEAN OIL\VITAMINS
     Indication: Product used for unknown indication
     Dosage: STRAWBERRY AS DIRECTED
     Route: 048
  21. ENSURE [Concomitant]
     Active Substance: AMINO ACIDS\DEXTROSE\ELECTROLYTES NOS\SOYBEAN OIL\VITAMINS
     Indication: Product used for unknown indication
     Dosage: VANILLA AS PER PACKAGE INSERT
     Route: 048
  22. ENSURE [Concomitant]
     Active Substance: AMINO ACIDS\DEXTROSE\ELECTROLYTES NOS\SOYBEAN OIL\VITAMINS
     Indication: Product used for unknown indication
     Dosage: VANILLA AS DIRECTED (400G T/F)
     Route: 048

REACTIONS (1)
  - Cerebral haemorrhage [Fatal]
